FAERS Safety Report 5510299-6 (Version None)
Quarter: 2007Q4

REPORT INFORMATION
  Report Type: 
  Country: None (occurrence: None)
  Receive Date: 20071030
  Receipt Date: 20061025
  Transmission Date: 20080405
  Serious: Yes (Other)
  Sender: FDA-Public Use
  Company Number: HQWYE620126OCT06

PATIENT
  Sex: Female

DRUGS (4)
  1. PREMARIN [Suspect]
  2. ESTRADIOL [Suspect]
  3. MEDROXYPROGESTERONE [Suspect]
  4. PROVERA [Suspect]

REACTIONS (1)
  - BREAST CANCER [None]
